FAERS Safety Report 8790360 (Version 1)
Quarter: 2012Q4

REPORT INFORMATION
  Report Type: 
  Country: FR (occurrence: FR)
  Receive Date: 20120917
  Receipt Date: 20120917
  Transmission Date: 20130627
  Serious: Yes (Hospitalization)
  Sender: FDA-Public Use
  Company Number: FR-MYLANLABS-2012S1018247

PATIENT
  Age: 53 Year
  Sex: Male

DRUGS (4)
  1. VANCOMYCINE [Suspect]
     Indication: LUNG DISORDER
     Route: 042
     Dates: start: 20120525, end: 20120527
  2. GENTAMICIN [Suspect]
     Indication: LUNG DISORDER
     Route: 042
     Dates: start: 20120525, end: 20120527
  3. AUGMENTIN [Suspect]
     Indication: LUNG DISORDER
     Route: 042
     Dates: start: 20120528, end: 20120608
  4. ERYTHROMYCIN [Suspect]
     Indication: LUNG DISORDER
     Route: 042
     Dates: start: 20120528, end: 20120530

REACTIONS (6)
  - Rash maculo-papular [Recovered/Resolved]
  - Purpura [Recovered/Resolved]
  - Skin oedema [None]
  - Splenic vein thrombosis [None]
  - Inflammation [None]
  - Erythema [None]
